FAERS Safety Report 20819334 (Version 1)
Quarter: 2022Q2

REPORT INFORMATION
  Report Type: Spontaneous
  Country: US (occurrence: None)
  Receive Date: 20220511
  Receipt Date: 20220511
  Transmission Date: 20220721
  Serious: Yes (Hospitalization)
  Sender: FDA-Public Use
  Company Number: None

PATIENT
  Age: 79 Year
  Sex: Female

DRUGS (3)
  1. ENBREL [Suspect]
     Active Substance: ETANERCEPT
     Indication: Rheumatoid arthritis
     Dosage: FREQUENCY : WEEKLY;?
     Route: 058
     Dates: start: 20111025
  2. ENBREL [Suspect]
     Active Substance: ETANERCEPT
     Indication: Myopathy
  3. ZOLEDRONIC ACID [Suspect]
     Active Substance: ZOLEDRONIC ACID
     Dosage: OTHER FREQUENCY : QY;?
     Route: 042
     Dates: start: 20171208

REACTIONS (3)
  - Fall [None]
  - Head injury [None]
  - Contusion [None]

NARRATIVE: CASE EVENT DATE: 20220503
